FAERS Safety Report 10925438 (Version 2)
Quarter: 2015Q2

REPORT INFORMATION
  Report Type: Spontaneous
  Country: US (occurrence: US)
  Receive Date: 20150318
  Receipt Date: 20150414
  Transmission Date: 20150821
  Serious: Yes (Other)
  Sender: FDA-Public Use
  Company Number: US-INCYTE CORPORATION-2015IN000992

PATIENT
  Sex: Male
  Weight: 68.48 kg

DRUGS (8)
  1. JAKAFI [Suspect]
     Active Substance: RUXOLITINIB
     Dosage: 5 MG, BID
     Route: 048
     Dates: start: 20150317
  2. JAKAFI [Suspect]
     Active Substance: RUXOLITINIB
     Indication: POLYCYTHAEMIA VERA
     Dosage: 20 MG, BID
     Route: 048
     Dates: start: 20150212, end: 20150317
  3. CALTRATE                           /00944201/ [Concomitant]
  4. VITAMIN E                          /00110501/ [Concomitant]
  5. VITAMIN D3 [Concomitant]
     Active Substance: CHOLECALCIFEROL
  6. MEGACE [Concomitant]
     Active Substance: MEGESTROL ACETATE
  7. VITAMIN C [Concomitant]
     Active Substance: ASCORBIC ACID
  8. FOLBIC [Concomitant]
     Active Substance: CYANOCOBALAMIN\FOLIC ACID\PYRIDOXINE

REACTIONS (2)
  - Platelet count decreased [Unknown]
  - Haemorrhage [Unknown]
